FAERS Safety Report 14897047 (Version 4)
Quarter: 2020Q1

REPORT INFORMATION
  Report Type: Report from Study
  Country: US (occurrence: US)
  Receive Date: 20180515
  Receipt Date: 20200214
  Transmission Date: 20200409
  Serious: Yes (Other)
  Sender: FDA-Public Use
  Company Number: US-TESARO, INC-US-2018TSO02152

PATIENT
  Sex: Female
  Weight: 66 kg

DRUGS (2)
  1. NIRAPARIB [Suspect]
     Active Substance: NIRAPARIB
     Dosage: 300 MG, QD
     Dates: start: 20200125
  2. NIRAPARIB [Suspect]
     Active Substance: NIRAPARIB
     Indication: OVARIAN CANCER
     Dosage: 300 MG, QD
     Route: 048
     Dates: start: 20180326, end: 20180425

REACTIONS (14)
  - Vaginal haemorrhage [Not Recovered/Not Resolved]
  - Epistaxis [Recovered/Resolved]
  - Adenocarcinoma [Unknown]
  - Pelvic pain [Recovered/Resolved]
  - Haematocrit decreased [Not Recovered/Not Resolved]
  - Abdominal discomfort [Unknown]
  - Neutrophil count decreased [Unknown]
  - White blood cell count decreased [Not Recovered/Not Resolved]
  - Platelet count decreased [Unknown]
  - Spondylolisthesis [Unknown]
  - Nausea [Not Recovered/Not Resolved]
  - Disease progression [Unknown]
  - Blood creatinine increased [Not Recovered/Not Resolved]
  - Haemoglobin decreased [Not Recovered/Not Resolved]
